FAERS Safety Report 8613559-5 (Version None)
Quarter: 2012Q3

REPORT INFORMATION
  Report Type: 
  Country: None (occurrence: None)
  Receive Date: 20120823
  Receipt Date: 20120808
  Transmission Date: 20120928
  Serious: Yes (Death)
  Sender: FDA-Public Use
  Company Number: US-009507513-1208USA004050

PATIENT

DRUGS (1)
  1. TEMODAR [Suspect]
     Dosage: 125 MG, QD
     Route: 048
     Dates: start: 20120723

REACTIONS (1)
  - PNEUMONIA [None]
